FAERS Safety Report 10671410 (Version 1)
Quarter: 2014Q4

REPORT INFORMATION
  Report Type: Spontaneous
  Country: US (occurrence: None)
  Receive Date: 20141219
  Receipt Date: 20141219
  Transmission Date: 20150529
  Serious: Yes (Other)
  Sender: FDA-Public Use
  Company Number: US-H14001-14-01817

PATIENT
  Sex: 0

DRUGS (3)
  1. EPOGEN [Concomitant]
     Active Substance: ERYTHROPOIETIN
  2. LITHIUM [Suspect]
     Active Substance: LITHIUM CARBONATE
     Indication: BIPOLAR DISORDER
  3. BLOOD PRESSURE MEDICATION (OTHER THERAPEUTIC PRODUCTS) [Concomitant]

REACTIONS (3)
  - Renal failure [None]
  - Dialysis [None]
  - Renal transplant [None]
